FAERS Safety Report 9100900 (Version 1)
Quarter: 2013Q1

REPORT INFORMATION
  Report Type: Spontaneous
  Country: US (occurrence: US)
  Receive Date: 20130215
  Receipt Date: 20130215
  Transmission Date: 20140127
  Serious: Yes (Other)
  Sender: FDA-Public Use
  Company Number: PHEH2013US003778

PATIENT
  Sex: Female

DRUGS (5)
  1. TEGRETOL-XR [Suspect]
     Dosage: 200 MG,
     Route: 048
  2. TEGRETOL-XR [Suspect]
     Dosage: 400 MG,
     Route: 048
  3. LIPITOR [Concomitant]
  4. TOPAMAX [Concomitant]
  5. TIMOLOL [Concomitant]

REACTIONS (1)
  - Glaucoma [Unknown]
